FAERS Safety Report 6354627-0 (Version None)
Quarter: 2009Q3

REPORT INFORMATION
  Report Type: 
  Country: None (occurrence: None)
  Receive Date: 20090914
  Receipt Date: 20090903
  Transmission Date: 20100115
  Serious: Yes (Other)
  Sender: FDA-Public Use
  Company Number: US-ELI_LILLY_AND_COMPANY-US200909000957

PATIENT
  Age: 13 Year
  Sex: Male
  Weight: 41.723 kg

DRUGS (5)
  1. STRATTERA [Suspect]
     Indication: BIPOLAR DISORDER
     Dosage: 160 MG, DAILY (1/D)
     Route: 065
     Dates: start: 20080101
  2. STRATTERA [Suspect]
     Dosage: 140 MG, DAILY (1/D)
     Route: 065
     Dates: start: 20090801
  3. STRATTERA [Suspect]
     Dosage: 120 MG, DAILY (1/D)
     Route: 065
     Dates: start: 20090901
  4. TENEX [Concomitant]
  5. CLONIDINE [Concomitant]

REACTIONS (3)
  - BLOOD ALKALINE PHOSPHATASE INCREASED [None]
  - OFF LABEL USE [None]
  - OVERDOSE [None]
